FAERS Safety Report 12452514 (Version 1)
Quarter: 2016Q2

REPORT INFORMATION
  Report Type: Spontaneous
  Country: US (occurrence: US)
  Receive Date: 20160609
  Receipt Date: 20160609
  Transmission Date: 20160815
  Serious: No
  Sender: FDA-Public Use
  Company Number: US-BAYER-2016-112640

PATIENT
  Age: 18 Year
  Sex: Female

DRUGS (1)
  1. MAGNEVIST [Suspect]
     Active Substance: GADOPENTETATE DIMEGLUMINE
     Indication: SPINAL CORD DISORDER
     Dosage: 15 ML, ONCE
     Route: 042
     Dates: start: 20160607, end: 20160607

REACTIONS (1)
  - Vomiting [None]

NARRATIVE: CASE EVENT DATE: 20160607
